FAERS Safety Report 6905872-4 (Version None)
Quarter: 2010Q3

REPORT INFORMATION
  Report Type: 
  Country: None (occurrence: None)
  Receive Date: 20100804
  Receipt Date: 20100722
  Transmission Date: 20110219
  Serious: Yes (Life-Threatening, Hospitalization, Congenital Anomaly, Other)
  Sender: FDA-Public Use
  Company Number: LB-ELI_LILLY_AND_COMPANY-LB201007005780

PATIENT

DRUGS (1)
  1. FLUOXETINE HCL [Suspect]
     Dosage: 20 MG, DAILY (1/D)
     Route: 064

REACTIONS (13)
  - ATRIAL SEPTAL DEFECT [None]
  - CONGENITAL PULMONARY ARTERY ANOMALY [None]
  - DRUG EXPOSURE DURING PREGNANCY [None]
  - FOETAL HYPOKINESIA [None]
  - HYPOGLYCAEMIA NEONATAL [None]
  - NEONATAL RESPIRATORY DEPRESSION [None]
  - OCULOAURICULOVERTEBRAL DYSPLASIA [None]
  - PULMONARY ARTERIAL PRESSURE INCREASED [None]
  - RETINAL ANOMALY CONGENITAL [None]
  - SCOLIOSIS [None]
  - SMALL FOR DATES BABY [None]
  - TRICUSPID VALVE INCOMPETENCE [None]
  - VENTRICULAR SEPTAL DEFECT [None]
